FAERS Safety Report 10543414 (Version 1)
Quarter: 2014Q4

REPORT INFORMATION
  Report Type: Spontaneous
  Country: US (occurrence: US)
  Receive Date: 20141027
  Receipt Date: 20141027
  Transmission Date: 20150529
  Serious: No
  Sender: FDA-Public Use
  Company Number: US-009507513-1410USA007015

PATIENT
  Sex: Female

DRUGS (1)
  1. IMPLANON [Suspect]
     Active Substance: ETONOGESTREL
     Dosage: 68, UNK
     Dates: start: 2011

REACTIONS (4)
  - Headache [Unknown]
  - Incorrect drug administration duration [Not Recovered/Not Resolved]
  - Haemorrhage [Unknown]
  - Acne [Unknown]
